FAERS Safety Report 6540093-9 (Version None)
Quarter: 2010Q1

REPORT INFORMATION
  Report Type: 
  Country: None (occurrence: None)
  Receive Date: 20100115
  Receipt Date: 20100105
  Transmission Date: 20100710
  Serious: Yes (Other)
  Sender: FDA-Public Use
  Company Number: AU-PFIZER INC-2009303473

PATIENT
  Age: 38 Year
  Sex: Female

DRUGS (2)
  1. ZELDOX [Suspect]
     Indication: SCHIZOPHRENIA
     Dosage: 40 MG, 1X/DAY, NOCTERNALLY
     Route: 048
     Dates: start: 20091028, end: 20091031
  2. ABILIFY [Concomitant]
     Indication: SCHIZOPHRENIA
     Dosage: 45 MG, 1X/DAY, MANE
     Route: 048

REACTIONS (2)
  - HYPERSOMNIA [None]
  - SOMNOLENCE [None]
